FAERS Safety Report 11345792 (Version 1)
Quarter: 2015Q3

REPORT INFORMATION
  Report Type: Report from Study
  Country: US (occurrence: US)
  Receive Date: 20150806
  Receipt Date: 20150806
  Transmission Date: 20151125
  Serious: No
  Sender: FDA-Public Use
  Company Number: US-ABBVIE-15P-163-1360122-00

PATIENT
  Sex: Male

DRUGS (1)
  1. DEPAKOTE [Suspect]
     Active Substance: DIVALPROEX SODIUM
     Indication: PRODUCT USED FOR UNKNOWN INDICATION
     Route: 065

REACTIONS (7)
  - Dyspepsia [Unknown]
  - Hot flush [Unknown]
  - Rash [Unknown]
  - Gastrointestinal pain [Unknown]
  - Somnolence [Unknown]
  - Disturbance in attention [Unknown]
  - Depression [Unknown]
